FAERS Safety Report 4363795-1 (Version None)
Quarter: 2004Q2

REPORT INFORMATION
  Report Type: 
  Country: None (occurrence: None)
  Receive Date: 20040524
  Receipt Date: 20030130
  Transmission Date: 20050107
  Serious: Yes (Other)
  Sender: FDA-Public Use
  Company Number: US-MERCK-0302USA00007

PATIENT
  Age: 46 Year
  Sex: Female
  Weight: 84 kg

DRUGS (4)
  1. NORVASC [Suspect]
     Indication: HYPERTENSION
     Route: 065
     Dates: start: 20010101, end: 20010101
  2. CARTIA XT [Suspect]
     Indication: HYPERTENSION
     Route: 065
     Dates: start: 20010101, end: 20010101
  3. CARTIA (DILTIAZEM HYDROCHLORIDE) [Concomitant]
     Route: 065
     Dates: start: 20010601, end: 20011001
  4. VIOXX [Suspect]
     Indication: ARTHRALGIA
     Route: 048
     Dates: start: 20000620, end: 20010626

REACTIONS (18)
  - ACCIDENT AT WORK [None]
  - ARTHRITIS [None]
  - BRONCHIOLITIS [None]
  - BRONCHOSPASM [None]
  - CERVICITIS [None]
  - DRUG HYPERSENSITIVITY [None]
  - ERYTHEMA [None]
  - EUSTACHIAN TUBE DYSFUNCTION [None]
  - FAECAL OCCULT BLOOD POSITIVE [None]
  - HIRSUTISM [None]
  - HYPERTENSION [None]
  - INJURY [None]
  - RASH [None]
  - SKIN DISORDER [None]
  - UPPER RESPIRATORY TRACT INFECTION [None]
  - UTERINE CERVICAL SQUAMOUS METAPLASIA [None]
  - UTERINE LEIOMYOMA [None]
  - WEIGHT INCREASED [None]
